FAERS Safety Report 19873442 (Version 2)
Quarter: 2021Q3

REPORT INFORMATION
  Report Type: Spontaneous
  Country: NL (occurrence: FI)
  Receive Date: 20210923
  Receipt Date: 20210930
  Transmission Date: 20211014
  Serious: Yes (Hospitalization)
  Sender: FDA-Public Use
  Company Number: FI-FRESENIUS KABI-FK202110118

PATIENT
  Age: 12 Year
  Sex: Female
  Weight: 38 kg

DRUGS (8)
  1. ETOPOSIDE (MANUFACTURER UNKNOWN) [Suspect]
     Active Substance: ETOPOSIDE
     Dosage: DOSE RECUDED 20 PERCENT TO 130 MILLIGRAM, CYCLICAL
     Route: 042
     Dates: start: 20210907
  2. LENVATINIB MESILATE [Suspect]
     Active Substance: LENVATINIB MESYLATE
     Dosage: DOSE REDUCED 20 PERCENT (14 MILLIGRAM, QD (1D)
     Route: 048
     Dates: start: 20210813
  3. PARACETAMOL [Concomitant]
     Active Substance: ACETAMINOPHEN
     Indication: PRODUCT USED FOR UNKNOWN INDICATION
     Dosage: UNK
     Route: 065
  4. ETORICOXIB. [Suspect]
     Active Substance: ETORICOXIB
     Indication: PRODUCT USED FOR UNKNOWN INDICATION
     Dosage: 60 MG, QD, 1 D
     Route: 048
     Dates: start: 20210813, end: 20210820
  5. IFOSFAMIDE. [Suspect]
     Active Substance: IFOSFAMIDE
     Indication: OSTEOSARCOMA RECURRENT
     Dosage: 3900 MILLIGRAM, CYCLICAL
     Route: 042
     Dates: start: 20210615, end: 20210819
  6. IFOSFAMIDE. [Suspect]
     Active Substance: IFOSFAMIDE
     Dosage: DOSE REDUCED 20 PERCENT (CYCLICAL)
     Route: 042
     Dates: start: 20210907
  7. ETOPOSIDE (MANUFACTURER UNKNOWN) [Suspect]
     Active Substance: ETOPOSIDE
     Indication: OSTEOSARCOMA RECURRENT
     Dosage: 130 MILLIGRAM, CYCLICAL
     Route: 042
     Dates: start: 20210615, end: 20210819
  8. LENVATINIB MESILATE [Suspect]
     Active Substance: LENVATINIB MESYLATE
     Indication: OSTEOSARCOMA RECURRENT
     Dosage: 18 MG, ONCE DAILY(1 D)
     Route: 048
     Dates: start: 20210623, end: 202108

REACTIONS (3)
  - Transaminases increased [Recovered/Resolved]
  - Proteinuria [Recovered/Resolved]
  - Tissue injury [Unknown]

NARRATIVE: CASE EVENT DATE: 20210820
